FAERS Safety Report 10883391 (Version 1)
Quarter: 2015Q1

REPORT INFORMATION
  Report Type: Spontaneous
  Country: US (occurrence: None)
  Receive Date: 20150226
  Receipt Date: 20150226
  Transmission Date: 20150721
  Serious: Yes (Disabling)
  Sender: FDA-Public Use
  Company Number: None

PATIENT
  Age: 42 Year
  Sex: Female
  Weight: 74.84 kg

DRUGS (3)
  1. AMLODIPINE WELLBUTRIN [Concomitant]
  2. LEVAQUIN [Suspect]
     Active Substance: LEVOFLOXACIN
     Indication: SINUSITIS
     Dosage: ONCE DAILY, TAKEN BY MOUTH
     Route: 048
     Dates: start: 20150208, end: 20150218
  3. LAXATIVE [Concomitant]
     Active Substance: UNSPECIFIED INGREDIENT

REACTIONS (6)
  - Swelling [None]
  - Chest pain [None]
  - Asthenia [None]
  - Myalgia [None]
  - Peripheral swelling [None]
  - Paraesthesia [None]

NARRATIVE: CASE EVENT DATE: 20150218
